FAERS Safety Report 5194856-5 (Version None)
Quarter: 2006Q4

REPORT INFORMATION
  Report Type: 
  Country: None (occurrence: None)
  Receive Date: 20061227
  Receipt Date: 20061212
  Transmission Date: 20070319
  Serious: Yes (Other)
  Sender: FDA-Public Use
  Company Number: GXKR2006US08187

PATIENT
  Age: 2 Year
  Sex: 0
  Weight: 7.7 kg

DRUGS (1)
  1. LORATADINE [Suspect]
     Indication: DRUG USE FOR UNKNOWN INDICATION
     Dosage: UP TO 830 MG, ORAL
     Route: 048

REACTIONS (3)
  - HEART RATE INCREASED [None]
  - OVERDOSE [None]
  - SOMNOLENCE [None]
